FAERS Safety Report 13741460 (Version 1)
Quarter: 2017Q3

REPORT INFORMATION
  Report Type: Spontaneous
  Country: US (occurrence: US)
  Receive Date: 20170711
  Receipt Date: 20170711
  Transmission Date: 20171127
  Serious: Yes (Hospitalization, Disabling, Other)
  Sender: FDA-Public Use
  Company Number: None

PATIENT
  Age: 69 Year
  Sex: Female
  Weight: 108.96 kg

DRUGS (10)
  1. XARELTO [Suspect]
     Active Substance: RIVAROXABAN
     Indication: THROMBOSIS PROPHYLAXIS
     Route: 048
     Dates: start: 20170523, end: 20170624
  2. ORACEA [Concomitant]
     Active Substance: DOXYCYCLINE
  3. METFORMIN [Concomitant]
     Active Substance: METFORMIN HYDROCHLORIDE
  4. OTEZLA [Concomitant]
     Active Substance: APREMILAST
  5. VITAMIN D [Concomitant]
     Active Substance: CHOLECALCIFEROL
  6. DIAZEPAM. [Concomitant]
     Active Substance: DIAZEPAM
  7. IBUPROFEN. [Concomitant]
     Active Substance: IBUPROFEN
  8. MELATONIN [Concomitant]
     Active Substance: MELATONIN
  9. CLARITIN [Concomitant]
     Active Substance: LORATADINE
  10. BENADRYL [Concomitant]
     Active Substance: DIPHENHYDRAMINE HYDROCHLORIDE

REACTIONS (5)
  - Musculoskeletal disorder [None]
  - Arthralgia [None]
  - Musculoskeletal pain [None]
  - Blood pressure increased [None]
  - Tremor [None]

NARRATIVE: CASE EVENT DATE: 20170623
